FAERS Safety Report 5782891-5 (Version None)
Quarter: 2008Q2

REPORT INFORMATION
  Report Type: 
  Country: None (occurrence: None)
  Receive Date: 20080624
  Receipt Date: 20080617
  Transmission Date: 20081010
  Serious: Yes (Other)
  Sender: FDA-Public Use
  Company Number: GB-RANBAXY-2008RR-15999

PATIENT

DRUGS (1)
  1. METFORMIN HCL [Suspect]
     Dosage: 500 MG, BID
     Dates: start: 20080520, end: 20080603

REACTIONS (1)
  - DEPRESSION [None]
